FAERS Safety Report 24139847 (Version 1)
Quarter: 2024Q3

REPORT INFORMATION
  Report Type: Spontaneous
  Country: IN (occurrence: IN)
  Receive Date: 20240726
  Receipt Date: 20240726
  Transmission Date: 20241017
  Serious: Yes (Life-Threatening, Hospitalization)
  Sender: ASPIRO PHARMA
  Company Number: IN-HETERO-ASP2024IN02428

PATIENT
  Age: 62 Year
  Sex: Female
  Weight: 50 kg

DRUGS (6)
  1. PROPOFOL [Suspect]
     Active Substance: PROPOFOL
     Indication: General anaesthesia
     Dosage: 100 MILLIGRAM
     Route: 042
  2. ATRACURIUM [Suspect]
     Active Substance: ATRACURIUM
     Indication: General anaesthesia
     Dosage: 25 MILLIGRAM
     Route: 042
  3. GLYCOPYRROLATE [Suspect]
     Active Substance: GLYCOPYRROLATE
     Indication: General anaesthesia
     Dosage: 0.2 MILLIGRAM
     Route: 042
  4. FENTANYL [Suspect]
     Active Substance: FENTANYL\FENTANYL CITRATE
     Indication: General anaesthesia
     Dosage: 100 MICROGRAM
     Route: 042
  5. DICLOFENAC [Concomitant]
     Active Substance: DICLOFENAC
     Indication: Analgesic therapy
     Dosage: 75 MILLIGRAM
     Route: 042
  6. ACETAMINOPHEN [Concomitant]
     Active Substance: ACETAMINOPHEN
     Indication: Analgesic therapy
     Dosage: 1 GRAM
     Route: 042

REACTIONS (4)
  - Urinary retention [Recovered/Resolved]
  - Autonomic nervous system imbalance [Recovered/Resolved]
  - Bladder dilatation [Recovered/Resolved]
  - Haemodynamic instability [Recovered/Resolved]
